FAERS Safety Report 6557376-9 (Version None)
Quarter: 2010Q1

REPORT INFORMATION
  Report Type: 
  Country: None (occurrence: None)
  Receive Date: 20100129
  Receipt Date: 20100118
  Transmission Date: 20100710
  Serious: Yes (Disabling)
  Sender: FDA-Public Use
  Company Number: PHHY2010NO02486

PATIENT
  Sex: Female

DRUGS (10)
  1. ACLASTA [Suspect]
     Indication: OSTEOPOROSIS
     Dosage: 5 MG, UNK
     Dates: start: 20090805, end: 20090805
  2. ENBREL [Concomitant]
     Dosage: 25 MG, QW2
     Route: 051
  3. SOTALOL [Concomitant]
     Dosage: 120 MG, BID
     Route: 048
  4. PREDNISOLON [Concomitant]
     Dosage: 6.25 MG, QD
     Route: 048
  5. CALCIGRAN [Concomitant]
     Dosage: 1 DF, BID
     Route: 048
  6. VOLTAREN [Concomitant]
     Dosage: 50 MG, BID
     Route: 048
  7. LOSEC MUPS [Concomitant]
     Dosage: 20 MG, BID
     Route: 048
  8. NASONEX [Concomitant]
     Dosage: 100 UG, UNK
     Route: 055
  9. METHOTREXATE [Concomitant]
     Dosage: 10 MG, QW
     Route: 048
  10. FOLIC ACID [Concomitant]
     Dosage: 1 MG, UNK
     Route: 048

REACTIONS (16)
  - DEAFNESS UNILATERAL [None]
  - DIARRHOEA [None]
  - DYSPNOEA [None]
  - EAR PAIN [None]
  - EYE INFLAMMATION [None]
  - EYE PAIN [None]
  - HEADACHE [None]
  - HEART RATE INCREASED [None]
  - HEART RATE IRREGULAR [None]
  - MUSCLE SPASMS [None]
  - MYALGIA [None]
  - NEURALGIA [None]
  - PAIN IN EXTREMITY [None]
  - RHEUMATOID ARTHRITIS [None]
  - RHINALGIA [None]
  - SINUS HEADACHE [None]
